FAERS Safety Report 5842899-8 (Version None)
Quarter: 2008Q3

REPORT INFORMATION
  Report Type: 
  Country: None (occurrence: None)
  Receive Date: 20080811
  Receipt Date: 20080729
  Transmission Date: 20090109
  Serious: Yes (Other)
  Sender: FDA-Public Use
  Company Number: DSU-2008-01144

PATIENT
  Age: 85 Year
  Sex: Female
  Weight: 57.6068 kg

DRUGS (5)
  1. BENICAR [Suspect]
     Indication: HYPERTENSION
     Dosage: 20 MG (20 MG, QD) PER ORAL
     Route: 048
  2. METFORMIN HCL [Concomitant]
  3. NORVASC [Concomitant]
  4. GLYBURIDE [Concomitant]
  5. VITAMIN SUPPLEMENTS      (VITAMINS) [Concomitant]

REACTIONS (4)
  - BLOOD GLUCOSE DECREASED [None]
  - DECREASED ACTIVITY [None]
  - HYPOTENSION [None]
  - WEIGHT DECREASED [None]
